FAERS Safety Report 8013625-1 (Version None)
Quarter: 2011Q4

REPORT INFORMATION
  Report Type: 
  Country: None (occurrence: None)
  Receive Date: 20111229
  Receipt Date: 20111227
  Transmission Date: 20120403
  Serious: Yes (Other)
  Sender: FDA-Public Use
  Company Number: US-PFIZER INC-2011314281

PATIENT
  Sex: Female
  Weight: 104.31 kg

DRUGS (5)
  1. GABAPENTIN [Suspect]
     Indication: FIBROMYALGIA
     Dosage: 300 MG, 2X/DAY
     Route: 048
     Dates: start: 20111224, end: 20111226
  2. RAMIPRIL [Concomitant]
     Indication: HYPERTENSION
     Dosage: 10 MG, DAILY
  3. SAVELLA [Concomitant]
     Indication: FIBROMYALGIA
     Dosage: 50 MG, UNK
     Dates: start: 20110101
  4. OMEPRAZOLE MAGNESIUM [Concomitant]
     Indication: GASTRIC DISORDER
     Dosage: 20 MG, 2X/DAY
  5. PRAVASTATIN [Concomitant]
     Indication: BLOOD CHOLESTEROL ABNORMAL
     Dosage: 40 MG, DAILY

REACTIONS (8)
  - OEDEMA PERIPHERAL [None]
  - MOBILITY DECREASED [None]
  - DRUG INEFFECTIVE [None]
  - FATIGUE [None]
  - SOMNOLENCE [None]
  - MALAISE [None]
  - HYPERHIDROSIS [None]
  - PAIN IN EXTREMITY [None]
